FAERS Safety Report 6971900-3 (Version None)
Quarter: 2010Q3

REPORT INFORMATION
  Report Type: 
  Country: None (occurrence: None)
  Receive Date: 20100908
  Receipt Date: 20100908
  Transmission Date: 20110219
  Serious: No
  Sender: FDA-Public Use
  Company Number: None

PATIENT
  Sex: Male
  Weight: 53.1 kg

DRUGS (4)
  1. MERCAPTOPURINE [Suspect]
     Dosage: 12600 MG
     Dates: end: 20100824
  2. METHOTREXATE [Suspect]
     Dosage: 440 MG
     Dates: end: 20100818
  3. PREDNISONE [Suspect]
     Dosage: 900 MG
     Dates: end: 20100801
  4. VINCRISTINE SULFATE [Suspect]
     Dosage: 6 MG
     Dates: end: 20100728

REACTIONS (1)
  - HYPERBILIRUBINAEMIA [None]
